FAERS Safety Report 16568652 (Version 1)
Quarter: 2019Q3

REPORT INFORMATION
  Report Type: Spontaneous
  Country: CN (occurrence: CN)
  Receive Date: 20190713
  Receipt Date: 20190713
  Transmission Date: 20191004
  Serious: Yes (Other)
  Sender: FDA-Public Use
  Company Number: CN-NAPPMUNDI-GBR-2019-0067945

PATIENT
  Age: 51 Year
  Sex: Male
  Weight: 68 kg

DRUGS (1)
  1. MS CONTIN [Suspect]
     Active Substance: MORPHINE SULFATE
     Indication: ANALGESIC THERAPY
     Dosage: 30 MG, BID
     Route: 048
     Dates: start: 20190616, end: 20190628

REACTIONS (4)
  - Restlessness [Unknown]
  - Dysuria [Not Recovered/Not Resolved]
  - Abdominal distension [Unknown]
  - Abdominal pain [Unknown]

NARRATIVE: CASE EVENT DATE: 20190623
